FAERS Safety Report 5863972-4 (Version None)
Quarter: 2008Q3

REPORT INFORMATION
  Report Type: 
  Country: None (occurrence: None)
  Receive Date: 20080829
  Receipt Date: 20080822
  Transmission Date: 20090109
  Serious: Yes (Other)
  Sender: FDA-Public Use
  Company Number: PHBS2008US05504

PATIENT
  Age: 26 Year
  Sex: Female

DRUGS (6)
  1. OXYTOCIN [Suspect]
     Dosage: 5 U, UNK
  2. PHENYLEPHRINE [Suspect]
     Dosage: 50 UG, UNK
  3. SODIUM CHLORIDE [Concomitant]
     Dosage: 250 ML, UNK
  4. LIDOCAINE [Concomitant]
  5. EPINEPHRINE [Concomitant]
  6. FENTANYL-25 [Concomitant]
     Dosage: 100 UG, UNK

REACTIONS (4)
  - CARDIAC OUTPUT INCREASED [None]
  - MEAN ARTERIAL PRESSURE DECREASED [None]
  - STROKE VOLUME INCREASED [None]
  - VASCULAR RESISTANCE SYSTEMIC DECREASED [None]
